FAERS Safety Report 5414811-7 (Version None)
Quarter: 2007Q3

REPORT INFORMATION
  Report Type: 
  Country: None (occurrence: None)
  Receive Date: 20070813
  Receipt Date: 20070806
  Transmission Date: 20080115
  Serious: Yes (Other)
  Sender: FDA-Public Use
  Company Number: 2007SP013493

PATIENT
  Age: 48 Year
  Sex: Female
  Weight: 84.8226 kg

DRUGS (3)
  1. PEG-INTRON [Suspect]
     Indication: HEPATITIS C
     Dosage: 150 MCG;QW;SC
     Route: 058
     Dates: start: 20070607, end: 20070711
  2. REBETOL [Suspect]
     Indication: HEPATITIS C
     Dosage: 600 MG;BID;PO
     Route: 048
     Dates: start: 20070607, end: 20070701
  3. LASIX [Concomitant]

REACTIONS (15)
  - ANAEMIA [None]
  - ANOREXIA [None]
  - ASTHENIA [None]
  - BLOOD PRESSURE DECREASED [None]
  - DEHYDRATION [None]
  - DEPRESSION [None]
  - DIARRHOEA [None]
  - DISEASE RECURRENCE [None]
  - DYSGEUSIA [None]
  - DYSPNOEA [None]
  - FATIGUE [None]
  - HEART RATE DECREASED [None]
  - HYPERSOMNIA [None]
  - ORAL INTAKE REDUCED [None]
  - PAIN [None]
